FAERS Safety Report 9500636 (Version 2)
Quarter: 2013Q4

REPORT INFORMATION
  Report Type: Spontaneous
  Country: JP (occurrence: JP)
  Receive Date: 20130905
  Receipt Date: 20131025
  Transmission Date: 20140711
  Serious: Yes (Other)
  Sender: FDA-Public Use
  Company Number: JP-PFIZER INC-2013256109

PATIENT
  Age: 70 Year
  Sex: Male

DRUGS (2)
  1. SOLANAX [Suspect]
     Dosage: 1.2 MG, DAILY
     Route: 048
  2. WARFARIN [Suspect]
     Dosage: UNK

REACTIONS (1)
  - Tubulointerstitial nephritis [Not Recovered/Not Resolved]
